FAERS Safety Report 24971564 (Version 2)
Quarter: 2025Q2

REPORT INFORMATION
  Report Type: Spontaneous
  Country: US (occurrence: US)
  Receive Date: 20250214
  Receipt Date: 20250401
  Transmission Date: 20250716
  Serious: Yes (Hospitalization)
  Sender: BRISTOL MYERS SQUIBB
  Company Number: US-BRISTOL-MYERS SQUIBB COMPANY-2025-019735

PATIENT
  Age: 70 Year
  Sex: Female

DRUGS (4)
  1. POMALYST [Suspect]
     Active Substance: POMALIDOMIDE
     Indication: Plasma cell myeloma
     Dosage: DAILY 21ON/7OFF
     Route: 048
     Dates: start: 202412
  2. POMALYST [Suspect]
     Active Substance: POMALIDOMIDE
     Dosage: ONCE DAILY
     Route: 048
     Dates: start: 202412
  3. LENALIDOMIDE [Concomitant]
     Active Substance: LENALIDOMIDE
     Indication: Product used for unknown indication
  4. NINLARO [Concomitant]
     Active Substance: IXAZOMIB CITRATE
     Indication: Product used for unknown indication
     Dosage: TAKE 1 CAPSULE BY MOUTH ON DAYS 1, 8, 15 OF A 28 DAY CYCLE
     Route: 048

REACTIONS (6)
  - White blood cell count decreased [Unknown]
  - Urinary tract infection [Unknown]
  - Cellulitis [Unknown]
  - Incoherent [Unknown]
  - Back pain [Recovering/Resolving]
  - Decreased activity [Unknown]

NARRATIVE: CASE EVENT DATE: 20250110
